FAERS Safety Report 10514209 (Version 5)
Quarter: 2015Q2

REPORT INFORMATION
  Report Type: Spontaneous
  Country: US (occurrence: US)
  Receive Date: 20141013
  Receipt Date: 20150423
  Transmission Date: 20150821
  Serious: Yes (Other)
  Sender: FDA-Public Use
  Company Number: US-BAYER-2014-148168

PATIENT
  Age: 35 Year
  Sex: Male
  Weight: 57.6 kg

DRUGS (4)
  1. KOGENATE FS [Suspect]
     Active Substance: ANTIHEMOPHILIC FACTOR, HUMAN RECOMBINANT
     Indication: FACTOR VIII DEFICIENCY
     Dosage: 3100 U, BIW
     Route: 042
  2. KOGENATE FS [Suspect]
     Active Substance: ANTIHEMOPHILIC FACTOR, HUMAN RECOMBINANT
     Indication: FACTOR VIII DEFICIENCY
     Dosage: (STRENGTH 3002), BIW
     Route: 042
     Dates: start: 20140801
  3. KOGENATE FS [Suspect]
     Active Substance: ANTIHEMOPHILIC FACTOR, HUMAN RECOMBINANT
     Indication: FACTOR VIII DEFICIENCY
     Dosage: (STRENGTH 3002), BIW
     Route: 042
     Dates: start: 20140801
  4. KOGENATE FS [Suspect]
     Active Substance: ANTIHEMOPHILIC FACTOR, HUMAN RECOMBINANT
     Indication: FACTOR VIII DEFICIENCY
     Dosage: 3100 U, QOD
     Route: 042

REACTIONS (7)
  - Haemarthrosis [Recovered/Resolved]
  - Synovial cyst [None]
  - Haemarthrosis [Recovered/Resolved]
  - Treatment noncompliance [None]
  - Haemarthrosis [None]
  - Arthritis [None]
  - Haemarthrosis [None]

NARRATIVE: CASE EVENT DATE: 20140912
